FAERS Safety Report 13703112 (Version 2)
Quarter: 2017Q3

REPORT INFORMATION
  Report Type: Spontaneous
  Country: TH (occurrence: TH)
  Receive Date: 20170629
  Receipt Date: 20170808
  Transmission Date: 20171127
  Serious: Yes (Other)
  Sender: FDA-Public Use
  Company Number: PHHY2017TH079352

PATIENT
  Sex: Female

DRUGS (1)
  1. TASIGNA [Suspect]
     Active Substance: NILOTINIB
     Indication: CHRONIC MYELOID LEUKAEMIA
     Dosage: 2 DF, BID
     Route: 065
     Dates: start: 20160121

REACTIONS (8)
  - Pallor [Unknown]
  - Peripheral arterial occlusive disease [Unknown]
  - Gangrene [Unknown]
  - Ulcer [Unknown]
  - Heart rate decreased [Recovered/Resolved]
  - Cytogenetic analysis abnormal [Unknown]
  - Pain [Unknown]
  - Cyanosis [Unknown]
